FAERS Safety Report 9407583 (Version 1)
Quarter: 2013Q3

REPORT INFORMATION
  Report Type: Spontaneous
  Country: NZ (occurrence: IN)
  Receive Date: 20130718
  Receipt Date: 20130718
  Transmission Date: 20140515
  Serious: No
  Sender: FDA-Public Use
  Company Number: NZ-009507513-1307NZL006736

PATIENT
  Sex: 0

DRUGS (2)
  1. SAPHRIS [Suspect]
     Dosage: 5 MG, PRN
     Route: 060
  2. SAPHRIS [Suspect]
     Dosage: 10 MG, QPM
     Route: 060

REACTIONS (10)
  - Tinnitus [Unknown]
  - Insomnia [Unknown]
  - Rash pruritic [Unknown]
  - Pain [Unknown]
  - Inflammation [Unknown]
  - Rash erythematous [Unknown]
  - Hypomania [Unknown]
  - Migraine [Unknown]
  - Inappropriate schedule of drug administration [Unknown]
  - Drug ineffective for unapproved indication [Unknown]
